FAERS Safety Report 12688976 (Version 1)
Quarter: 2016Q3

REPORT INFORMATION
  Report Type: Spontaneous
  Country: GB (occurrence: GB)
  Receive Date: 20160825
  Receipt Date: 20160825
  Transmission Date: 20161109
  Serious: Yes (Other)
  Sender: FDA-Public Use
  Company Number: GB-JNJFOC-20160809073

PATIENT
  Sex: Male

DRUGS (1)
  1. CALPOL [Suspect]
     Active Substance: ACETAMINOPHEN
     Indication: PRODUCT USED FOR UNKNOWN INDICATION
     Route: 065
     Dates: start: 20160810

REACTIONS (7)
  - Respiratory arrest [Recovered/Resolved]
  - Hypotonia [Recovered/Resolved]
  - Choking [Recovered/Resolved]
  - Eye movement disorder [Recovered/Resolved]
  - Abnormal behaviour [Recovered/Resolved]
  - Syringe issue [Unknown]
  - Hypokinesia [Recovered/Resolved]

NARRATIVE: CASE EVENT DATE: 20160810
